FAERS Safety Report 5869987-4 (Version None)
Quarter: 2008Q3

REPORT INFORMATION
  Report Type: 
  Country: None (occurrence: None)
  Receive Date: 20080904
  Receipt Date: 20080904
  Transmission Date: 20090109
  Serious: Yes (Hospitalization)
  Sender: FDA-Public Use
  Company Number: PHEH1995US03155

PATIENT
  Sex: Female
  Weight: 80.5 kg

DRUGS (13)
  1. SANDIMMUNE [Suspect]
     Route: 048
     Dates: start: 19950714, end: 19950818
  2. SANDIMMUNE [Suspect]
     Route: 048
     Dates: start: 19950819
  3. SANDIMMUNE VERSUS NEORAL [Suspect]
  4. IMURAN [Concomitant]
     Dosage: UNSPECIFIED
     Route: 065
  5. PREDNISONE TAB [Concomitant]
     Dosage: UNSPECIFIED
     Route: 065
  6. BACTRIM [Concomitant]
  7. CLOTRIMAZOLE [Concomitant]
  8. ACYCLOVIR [Concomitant]
  9. ZOLOFT [Concomitant]
  10. OMEPRAZOLE [Concomitant]
  11. SYNTHROID [Concomitant]
  12. PROCARDIA [Concomitant]
  13. KLONOPIN [Concomitant]

REACTIONS (5)
  - CONFUSIONAL STATE [None]
  - DIZZINESS [None]
  - DRUG LEVEL INCREASED [None]
  - FALL [None]
  - HEADACHE [None]
